FAERS Safety Report 14149916 (Version 3)
Quarter: 2018Q2

REPORT INFORMATION
  Report Type: Spontaneous
  Country: AU (occurrence: AU)
  Receive Date: 20171101
  Receipt Date: 20180611
  Transmission Date: 20180711
  Serious: Yes (Life-Threatening, Other)
  Sender: FDA-Public Use
  Company Number: AU-NAPPMUNDI-GBR-2015-0032670

PATIENT
  Age: 51 Year
  Sex: Male

DRUGS (4)
  1. METHADONE [Interacting]
     Active Substance: METHADONE HYDROCHLORIDE
     Indication: CANCER PAIN
     Dosage: UNK
     Route: 065
  2. METHADONE [Interacting]
     Active Substance: METHADONE HYDROCHLORIDE
     Indication: ANALGESIC THERAPY
  3. OPIOIDS [Concomitant]
     Active Substance: UNSPECIFIED INGREDIENT
  4. TARGIN [Suspect]
     Active Substance: NALOXONE HYDROCHLORIDE\OXYCODONE HYDROCHLORIDE
     Indication: PAIN
     Route: 048

REACTIONS (5)
  - Drug ineffective [Recovered/Resolved]
  - Overdose [Unknown]
  - Stupor [Unknown]
  - Inhibitory drug interaction [Unknown]
  - Drug withdrawal syndrome [Unknown]
